FAERS Safety Report 5723793-X (Version None)
Quarter: 2008Q2

REPORT INFORMATION
  Report Type: 
  Country: None (occurrence: None)
  Receive Date: 20080430
  Receipt Date: 20080416
  Transmission Date: 20081010
  Serious: Yes (Life-Threatening, Hospitalization)
  Sender: FDA-Public Use
  Company Number: IT-GILEAD-2008-0016056

PATIENT
  Sex: Male
  Weight: 128 kg

DRUGS (8)
  1. VIREAD [Suspect]
     Indication: HEPATITIS B
     Route: 048
     Dates: start: 20080327, end: 20080407
  2. VIREAD [Suspect]
     Route: 048
     Dates: start: 20080409, end: 20080410
  3. VIREAD [Suspect]
     Route: 048
     Dates: start: 20080411
  4. LASIX [Concomitant]
     Indication: OEDEMA
  5. LASIX [Concomitant]
     Indication: OLIGURIA
  6. KONAKION [Concomitant]
     Indication: VITAMIN SUPPLEMENTATION
  7. LUVION [Concomitant]
     Indication: DIURETIC THERAPY
  8. BARACLUDE [Concomitant]
     Indication: HEPATITIS B
     Dates: start: 20070601, end: 20080326

REACTIONS (1)
  - RENAL FAILURE [None]
